FAERS Safety Report 22209355 (Version 1)
Quarter: 2023Q2

REPORT INFORMATION
  Report Type: Report from Study
  Country: FR (occurrence: FR)
  Receive Date: 20230413
  Receipt Date: 20230413
  Transmission Date: 20230721
  Serious: Yes (Death, Other)
  Sender: FDA-Public Use
  Company Number: FR-ABBVIE-4726221

PATIENT
  Age: 72 Year
  Sex: Female

DRUGS (2)
  1. CARBIDOPA\LEVODOPA [Suspect]
     Active Substance: CARBIDOPA\LEVODOPA
     Indication: Parkinson^s disease
     Route: 050
     Dates: start: 20220307
  2. CARBIDOPA\LEVODOPA [Suspect]
     Active Substance: CARBIDOPA\LEVODOPA

REACTIONS (9)
  - Cardio-respiratory arrest [Fatal]
  - Loss of consciousness [Unknown]
  - General physical health deterioration [Unknown]
  - Vomiting [Unknown]
  - Dysphagia [Unknown]
  - Cerebrovascular accident [Unknown]
  - Malnutrition [Unknown]
  - Failure to thrive [Unknown]
  - Hemiplegia [Unknown]

NARRATIVE: CASE EVENT DATE: 20221201
